FAERS Safety Report 8904105 (Version 1)
Quarter: 2012Q4

REPORT INFORMATION
  Report Type: 
  Country: JP (occurrence: JP)
  Receive Date: 20121112
  Receipt Date: 20121112
  Transmission Date: 20130627
  Serious: Yes (Other)
  Sender: FDA-Public Use
  Company Number: JP-PFIZER INC-2012277441

PATIENT
  Age: 60 Year
  Sex: Male

DRUGS (2)
  1. SEIBULE [Suspect]
     Dosage: 75 mg, 1x/day
     Route: 048
  2. SEIBULE [Suspect]
     Dosage: 175 mg, 1x/day
     Route: 048

REACTIONS (1)
  - Pneumatosis intestinalis [Recovering/Resolving]
